FAERS Safety Report 12137103 (Version 1)
Quarter: 2016Q1

REPORT INFORMATION
  Report Type: Spontaneous
  Country: US (occurrence: US)
  Receive Date: 20160302
  Receipt Date: 20160302
  Transmission Date: 20160526
  Serious: No
  Sender: FDA-Public Use
  Company Number: US-PERRIGO-15US012860

PATIENT
  Age: 70 Year
  Sex: Female
  Weight: 95.24 kg

DRUGS (1)
  1. GOOD NEIGHBOR PHARMACY ANTI DIARRHEAL [Suspect]
     Active Substance: LOPERAMIDE HYDROCHLORIDE
     Indication: PROPHYLAXIS AGAINST DIARRHOEA
     Dosage: 4 MG, SINGLE
     Route: 048
     Dates: start: 20151113, end: 20151113

REACTIONS (5)
  - Diarrhoea [Recovered/Resolved]
  - Vulvovaginal pruritus [Recovered/Resolved]
  - Dysuria [Recovered/Resolved]
  - Off label use [Recovered/Resolved]
  - Urinary tract infection [Recovered/Resolved]

NARRATIVE: CASE EVENT DATE: 201511
